FAERS Safety Report 23346976 (Version 2)
Quarter: 2024Q2

REPORT INFORMATION
  Report Type: Spontaneous
  Country: US (occurrence: US)
  Receive Date: 20231228
  Receipt Date: 20240425
  Transmission Date: 20240716
  Serious: No
  Sender: FDA-Public Use
  Company Number: US-BRISTOL-MYERS SQUIBB COMPANY-2023-188808

PATIENT
  Age: 58 Year
  Sex: Male
  Weight: 118.84 kg

DRUGS (1)
  1. REVLIMID [Suspect]
     Active Substance: LENALIDOMIDE
     Indication: Plasma cell myeloma
     Dosage: FREQ -EVERY OTHER DAY ON DAYS 1-21 OF 28 DAY CYCLE
     Route: 048
     Dates: start: 20231108

REACTIONS (5)
  - Swelling face [Recovered/Resolved]
  - Peripheral swelling [Recovered/Resolved]
  - Rash pruritic [Not Recovered/Not Resolved]
  - Off label use [Unknown]
  - Viral infection [Not Recovered/Not Resolved]
